FAERS Safety Report 10159697 (Version 1)
Quarter: 2014Q2

REPORT INFORMATION
  Report Type: Report from Study
  Country: GB (occurrence: GB)
  Receive Date: 20140508
  Receipt Date: 20140508
  Transmission Date: 20141212
  Serious: Yes (Death)
  Sender: FDA-Public Use
  Company Number: GB-MYLANLABS-2014S1009972

PATIENT
  Age: 9 Day
  Sex: Male

DRUGS (1)
  1. METHADONE [Suspect]
     Route: 063

REACTIONS (2)
  - Death [Fatal]
  - Exposure during breast feeding [Fatal]
